FAERS Safety Report 6662551-9 (Version None)
Quarter: 2010Q1

REPORT INFORMATION
  Report Type: 
  Country: None (occurrence: None)
  Receive Date: 20100329
  Receipt Date: 20100319
  Transmission Date: 20100710
  Serious: Yes (Hospitalization, Other)
  Sender: FDA-Public Use
  Company Number: 2010SP016763

PATIENT
  Age: 37 Year
  Sex: Female

DRUGS (4)
  1. TEMODAL [Suspect]
     Indication: GLIOBLASTOMA
     Dosage: 72 MG/M2
     Dates: start: 20100111, end: 20100219
  2. LEVETIRACETAM [Suspect]
     Indication: ANTICONVULSANT DRUG LEVEL
     Dosage: 1500 MG;QD
     Dates: start: 20100101
  3. DEXAMETHASONE TAB [Concomitant]
  4. ESOMEPRAZOLE MAGNESIUM [Concomitant]

REACTIONS (1)
  - PANCREATITIS [None]
